FAERS Safety Report 16924641 (Version 1)
Quarter: 2019Q4

REPORT INFORMATION
  Report Type: Spontaneous
  Country: US (occurrence: US)
  Receive Date: 20190823
  Receipt Date: 20190823
  Transmission Date: 20200122
  Serious: Yes (Hospitalization)
  Sender: FDA-Public Use
  Company Number: None

PATIENT
  Age: 56 Year
  Sex: Male
  Weight: 61 kg

DRUGS (2)
  1. MELOXICAM. [Suspect]
     Active Substance: MELOXICAM
     Indication: PAIN
     Route: 048
     Dates: start: 20180501, end: 20190720
  2. LISINOPRIL. [Suspect]
     Active Substance: LISINOPRIL
     Indication: HYPERTENSION
     Route: 048
     Dates: start: 20190228, end: 20190720

REACTIONS (5)
  - Renal ischaemia [None]
  - Acute kidney injury [None]
  - Hypovolaemia [None]
  - Hypotension [None]
  - Blood potassium increased [None]

NARRATIVE: CASE EVENT DATE: 20190716
